FAERS Safety Report 13818804 (Version 2)
Quarter: 2018Q1

REPORT INFORMATION
  Report Type: Report from Study
  Country: US (occurrence: US)
  Receive Date: 20170731
  Receipt Date: 20180201
  Transmission Date: 20180508
  Serious: No
  Sender: FDA-Public Use
  Company Number: US-EXELIXIS-CABO-17009020

PATIENT
  Sex: Male

DRUGS (1)
  1. CABOMETYX [Suspect]
     Active Substance: CABOZANTINIB S-MALATE
     Indication: PANCREATIC CARCINOMA
     Dosage: 60 MG, QD
     Route: 048
     Dates: start: 20170418

REACTIONS (3)
  - Nausea [Unknown]
  - Fatigue [Unknown]
  - Oral pain [Unknown]
